FAERS Safety Report 5917192-5 (Version None)
Quarter: 2008Q4

REPORT INFORMATION
  Report Type: 
  Country: None (occurrence: None)
  Receive Date: 20081014
  Receipt Date: 20081009
  Transmission Date: 20090506
  Serious: Yes (Other)
  Sender: FDA-Public Use
  Company Number: US-BRISTOL-MYERS SQUIBB COMPANY-14366264

PATIENT
  Age: 76 Year
  Sex: Male

DRUGS (1)
  1. ABILIFY [Suspect]
     Dosage: REDUCED TO 2.5MG QD

REACTIONS (3)
  - BLOOD CREATININE INCREASED [None]
  - COMA [None]
  - DEHYDRATION [None]
